FAERS Safety Report 7048584-1 (Version None)
Quarter: 2010Q4

REPORT INFORMATION
  Report Type: 
  Country: None (occurrence: None)
  Receive Date: 20101017
  Receipt Date: 20101013
  Transmission Date: 20110411
  Serious: Yes (Hospitalization, Other)
  Sender: FDA-Public Use
  Company Number: FR-BRISTOL-MYERS SQUIBB COMPANY-15333586

PATIENT
  Age: 56 Year
  Sex: Male

DRUGS (1)
  1. ORENCIA [Suspect]
     Route: 042

REACTIONS (2)
  - VENTRICULAR EXTRASYSTOLES [None]
  - WOUND INFECTION [None]
